FAERS Safety Report 6901160 (Version 3)
Quarter: 2016Q2

REPORT INFORMATION
  Report Type: Report from Study
  Country: US (occurrence: US)
  Receive Date: 20090204
  Receipt Date: 20160629
  Transmission Date: 20160815
  Serious: Yes (Death, Hospitalization, Other)
  Sender: FDA-Public Use
  Company Number: PHHO2008US06225

PATIENT
  Age: 52 Year
  Sex: Female
  Weight: 48.2 kg

DRUGS (5)
  1. STI571D [Suspect]
     Active Substance: IMATINIB MESYLATE
     Dosage: 200 MG, UNK
     Route: 048
     Dates: start: 20080402, end: 20080503
  2. MELOXICAM. [Concomitant]
     Active Substance: MELOXICAM
     Indication: PRODUCT USED FOR UNKNOWN INDICATION
     Dosage: UNK
     Route: 065
  3. COZAAR [Concomitant]
     Active Substance: LOSARTAN POTASSIUM
     Indication: PRODUCT USED FOR UNKNOWN INDICATION
     Dosage: UNK
     Route: 065
  4. STI571D [Suspect]
     Active Substance: IMATINIB MESYLATE
     Indication: SYSTEMIC SCLEROSIS
     Dosage: 200 MG, UNK
     Route: 048
     Dates: start: 20080221, end: 20080319
  5. NEXIUM [Concomitant]
     Active Substance: ESOMEPRAZOLE MAGNESIUM
     Indication: PRODUCT USED FOR UNKNOWN INDICATION
     Dosage: UNK
     Route: 065

REACTIONS (6)
  - Pulmonary oedema [Unknown]
  - Acute myocardial infarction [Fatal]
  - Systemic sclerosis [Fatal]
  - Cardiac failure acute [Fatal]
  - Acute kidney injury [Unknown]
  - Generalised oedema [Unknown]

NARRATIVE: CASE EVENT DATE: 20080506
